FAERS Safety Report 7809311-0 (Version None)
Quarter: 2011Q4

REPORT INFORMATION
  Report Type: 
  Country: None (occurrence: None)
  Receive Date: 20111006
  Receipt Date: 20110921
  Transmission Date: 20120403
  Serious: Yes (Other)
  Sender: FDA-Public Use
  Company Number: THQ2011A05884

PATIENT
  Sex: Male

DRUGS (1)
  1. PIOGLITAZONE HYDROCHLORIDE AND METFORMIN HYDROCHLORIDE [Suspect]
     Indication: DIABETES MELLITUS
     Dosage: PIOGLITAZONE HYDROCHLORIDE 15 MG/METFORMIN HYDROCHLORIDE 850 MG, ORAL
     Route: 048

REACTIONS (1)
  - BLADDER CANCER [None]
